FAERS Safety Report 12120275 (Version 3)
Quarter: 2017Q3

REPORT INFORMATION
  Report Type: Spontaneous
  Country: US (occurrence: US)
  Receive Date: 20160226
  Receipt Date: 20170711
  Transmission Date: 20171127
  Serious: Yes (Life-Threatening, Hospitalization)
  Sender: FDA-Public Use
  Company Number: US-JNJFOC-20160221007

PATIENT
  Age: 41 Year
  Sex: Female

DRUGS (2)
  1. INVOKANA [Suspect]
     Active Substance: CANAGLIFLOZIN
     Indication: DIABETES MELLITUS MANAGEMENT
     Route: 048
     Dates: start: 20150105, end: 20150131
  2. TRAJENTA [Suspect]
     Active Substance: LINAGLIPTIN
     Indication: PRODUCT USED FOR UNKNOWN INDICATION
     Route: 065
     Dates: end: 201502

REACTIONS (7)
  - Diabetic ketoacidosis [Recovering/Resolving]
  - Rhabdomyolysis [Recovering/Resolving]
  - Respiratory failure [Recovering/Resolving]
  - Cerebral infarction [Recovering/Resolving]
  - Transaminases increased [Recovering/Resolving]
  - Acute kidney injury [Recovering/Resolving]
  - Pain in extremity [Not Recovered/Not Resolved]

NARRATIVE: CASE EVENT DATE: 201501
